FAERS Safety Report 20886635 (Version 1)
Quarter: 2022Q2

REPORT INFORMATION
  Report Type: Spontaneous
  Country: CA (occurrence: CA)
  Receive Date: 20220527
  Receipt Date: 20220527
  Transmission Date: 20220720
  Serious: Yes (Hospitalization, Other)
  Sender: FDA-Public Use
  Company Number: CA-BAYER-2022A073923

PATIENT
  Age: 80 Year
  Sex: Female
  Weight: 76 kg

DRUGS (9)
  1. XARELTO [Suspect]
     Active Substance: RIVAROXABAN
     Indication: Thrombosis prophylaxis
     Dosage: 10 MG, QD
     Route: 048
  2. ELIQUIS [Suspect]
     Active Substance: APIXABAN
     Indication: Atrial fibrillation
     Dosage: 2.5 MG, QD
     Route: 048
  3. CELEBREX [Suspect]
     Active Substance: CELECOXIB
     Indication: Thrombosis prophylaxis
     Dosage: 2 EVERY 1 DAYS
     Route: 048
  4. ALLOPURINOL [Concomitant]
     Active Substance: ALLOPURINOL
  5. BISOPROLOL [Concomitant]
     Active Substance: BISOPROLOL
     Route: 065
  6. CANDESARTAN [Concomitant]
     Active Substance: CANDESARTAN
  7. CITALOPRAM [Concomitant]
     Active Substance: CITALOPRAM HYDROBROMIDE
  8. DONEPEZIL [Concomitant]
     Active Substance: DONEPEZIL
  9. FERROUS GLUCONATE [Concomitant]
     Active Substance: FERROUS GLUCONATE

REACTIONS (3)
  - Transfusion [Recovered/Resolved]
  - Oesophageal ulcer [Recovered/Resolved]
  - Gastric ulcer [Recovered/Resolved]
